FAERS Safety Report 6683945-1 (Version None)
Quarter: 2010Q2

REPORT INFORMATION
  Report Type: 
  Country: None (occurrence: None)
  Receive Date: 20100416
  Receipt Date: 20100406
  Transmission Date: 20101027
  Serious: Yes (Hospitalization, Other)
  Sender: FDA-Public Use
  Company Number: JP-PFIZER INC-2010037013

PATIENT
  Age: 63 Year
  Sex: Male
  Weight: 50.4 kg

DRUGS (2)
  1. LIPITOR [Suspect]
     Dosage: UNK
  2. HALCION [Concomitant]
     Dates: start: 20030908

REACTIONS (3)
  - FOOD INTERACTION [None]
  - HERPES ZOSTER [None]
  - HYPERLIPIDAEMIA [None]
